FAERS Safety Report 14983903 (Version 1)
Quarter: 2018Q2

REPORT INFORMATION
  Report Type: Spontaneous
  Country: US (occurrence: US)
  Receive Date: 20180607
  Receipt Date: 20180607
  Transmission Date: 20180711
  Serious: Yes (Hospitalization, Other)
  Sender: FDA-Public Use
  Company Number: US-TEVA-2018-US-900725

PATIENT
  Age: 16 Year
  Sex: Female

DRUGS (3)
  1. ETOPOSIDE. [Suspect]
     Active Substance: ETOPOSIDE
     Route: 065
  2. CYTARABINE. [Suspect]
     Active Substance: CYTARABINE
     Route: 065
  3. DAUNORUBICIN [Concomitant]
     Active Substance: DAUNORUBICIN
     Route: 065

REACTIONS (4)
  - Hyperammonaemic encephalopathy [Recovered/Resolved]
  - Seizure [Recovered/Resolved]
  - Ureaplasma infection [Recovering/Resolving]
  - Disseminated intravascular coagulation [Unknown]
